FAERS Safety Report 13134218 (Version 8)
Quarter: 2017Q3

REPORT INFORMATION
  Report Type: Spontaneous
  Country: US (occurrence: US)
  Receive Date: 20170120
  Receipt Date: 20170828
  Transmission Date: 20171127
  Serious: Yes (Hospitalization)
  Sender: FDA-Public Use
  Company Number: US-PFIZER INC-2017018192

PATIENT
  Age: 78 Year
  Sex: Male

DRUGS (12)
  1. TASIGNA [Concomitant]
     Active Substance: NILOTINIB
     Indication: CHRONIC MYELOID LEUKAEMIA
     Dosage: 150 MG, TWICE A DAY
  2. LOPERAMIDE [Concomitant]
     Active Substance: LOPERAMIDE
     Dosage: 2 MG, UNK
  3. HYDROCODONE [Concomitant]
     Active Substance: HYDROCODONE
     Dosage: UNK, (5-325MG)
  4. SUTENT [Suspect]
     Active Substance: SUNITINIB MALATE
     Dosage: 25 MG, UNK
  5. SUTENT [Suspect]
     Active Substance: SUNITINIB MALATE
     Dosage: 25 MG, CYCLIC, (DAILY FOR 4 WEEKS. 2 WEEKS OFF.)
     Route: 048
  6. TASIGNA [Concomitant]
     Active Substance: NILOTINIB
     Indication: NEOPLASM MALIGNANT
     Dosage: 300 MG, TWICE A DAY (150 2 TIMES DAILY 300 MG)
     Dates: start: 20170319, end: 20170319
  7. CARVEDILOL. [Concomitant]
     Active Substance: CARVEDILOL
     Dosage: 6.25 MG, UNK
  8. CARVEDILOL. [Concomitant]
     Active Substance: CARVEDILOL
     Dosage: 2.45 MG, UNK
  9. SUTENT [Suspect]
     Active Substance: SUNITINIB MALATE
     Indication: RENAL CANCER METASTATIC
     Dosage: 25 MG, CYCLIC (DAILY 4 WK ON, 2 WK OFF)
     Route: 048
     Dates: start: 20161220
  10. SUTENT [Suspect]
     Active Substance: SUNITINIB MALATE
     Indication: CHRONIC MYELOID LEUKAEMIA
     Dosage: 25 MG, CYCLIC (2 WEEKS ON/1 WEEK OFF)
     Dates: start: 20170112
  11. SUTENT [Suspect]
     Active Substance: SUNITINIB MALATE
     Dosage: 25 MG, CYCLIC
  12. SUTENT [Suspect]
     Active Substance: SUNITINIB MALATE
     Dosage: 25 MG, CYCLIC (ONE PO DAILY FOR 4 WEEKS, 2 WEEKS OFF, REPEAT CYCLE EVERY 6 WEEKS)
     Route: 048

REACTIONS (6)
  - Faeces discoloured [Not Recovered/Not Resolved]
  - Chromaturia [Not Recovered/Not Resolved]
  - Back injury [Not Recovered/Not Resolved]
  - Headache [Recovered/Resolved]
  - Back pain [Recovered/Resolved]
  - Diarrhoea [Not Recovered/Not Resolved]

NARRATIVE: CASE EVENT DATE: 20170112
